FAERS Safety Report 9135277 (Version 1)
Quarter: 2013Q1

REPORT INFORMATION
  Report Type: Spontaneous
  Country: US (occurrence: US)
  Receive Date: 20130304
  Receipt Date: 20130304
  Transmission Date: 20140127
  Serious: No
  Sender: FDA-Public Use
  Company Number: US-ALLERGAN-1204797US

PATIENT
  Age: 25 Year
  Sex: Female

DRUGS (1)
  1. TAZORAC [Suspect]
     Indication: ACNE
     Dosage: UNK
     Route: 061
     Dates: start: 20120402, end: 20120403

REACTIONS (3)
  - Swelling face [Recovering/Resolving]
  - Application site erythema [Recovering/Resolving]
  - Application site burn [Recovering/Resolving]
